FAERS Safety Report 15110742 (Version 4)
Quarter: 2021Q4

REPORT INFORMATION
  Report Type: Report from Study
  Country: MX (occurrence: MX)
  Receive Date: 20180705
  Receipt Date: 20211103
  Transmission Date: 20220303
  Serious: Yes (Hospitalization, Disabling, Other)
  Sender: FDA-Public Use
  Company Number: PHHY2018MX015648

PATIENT
  Age: 33 Year
  Sex: Female
  Weight: 95 kg

DRUGS (18)
  1. GILENYA [Suspect]
     Active Substance: FINGOLIMOD HYDROCHLORIDE
     Indication: Multiple sclerosis
     Dosage: 0.5 MG, QD
     Route: 048
     Dates: start: 20130401, end: 20180102
  2. GILENYA [Suspect]
     Active Substance: FINGOLIMOD HYDROCHLORIDE
     Dosage: 0.5 MG, QD
     Route: 048
     Dates: start: 20130709
  3. GILENYA [Suspect]
     Active Substance: FINGOLIMOD HYDROCHLORIDE
     Dosage: 0.5 MG, Q72H
     Route: 048
     Dates: start: 201801, end: 201803
  4. GILENYA [Suspect]
     Active Substance: FINGOLIMOD HYDROCHLORIDE
     Dosage: 0.5 MG, QD
     Route: 048
     Dates: start: 20180629
  5. GILENYA [Suspect]
     Active Substance: FINGOLIMOD HYDROCHLORIDE
     Dosage: 0.5 MG, QD
     Route: 048
     Dates: start: 20190325
  6. LYRICA [Concomitant]
     Active Substance: PREGABALIN
     Indication: Nervous system disorder
     Dosage: 150 MG, Q12H
     Route: 065
     Dates: start: 20171122
  7. TAFITRAM [Concomitant]
     Indication: Product used for unknown indication
     Dosage: 1 DF, Q12H
     Route: 048
     Dates: start: 20171122
  8. BUPRENORPHINE [Concomitant]
     Active Substance: BUPRENORPHINE
     Indication: Pain
     Dosage: 1 DF, Q96H (EVERY 4 DAYS)
     Route: 062
     Dates: start: 20171122
  9. BUPRENORPHINE HYDROCHLORIDE [Concomitant]
     Active Substance: BUPRENORPHINE HYDROCHLORIDE
     Indication: Pain
     Dosage: 1 ML, EVERY 8 DAYS DURING 1 MONTH
     Route: 030
     Dates: start: 20171122
  10. VITAMINS [Concomitant]
     Active Substance: VITAMINS
     Indication: Product used for unknown indication
     Dosage: 450 ML, QD
     Route: 065
  11. METICORTEN [Concomitant]
     Active Substance: PREDNISONE
     Indication: Pain
     Dosage: 20 MG, QD (STOPPED 15 DAYS AGO)
     Route: 048
     Dates: start: 20171122
  12. ENSURE [Concomitant]
     Active Substance: AMINO ACIDS\DEXTROSE\ELECTROLYTES NOS\SOYBEAN OIL\VITAMINS
     Indication: Vitamin supplementation
     Dosage: 450 ML, QD
     Route: 048
  13. ENSURE [Concomitant]
     Active Substance: AMINO ACIDS\DEXTROSE\ELECTROLYTES NOS\SOYBEAN OIL\VITAMINS
     Dosage: UNK
     Route: 065
  14. NIDESEF [Concomitant]
     Indication: Spinal operation
     Dosage: 1 DF, Q12H
     Route: 048
  15. DOLO NEUROBION FORTE [Concomitant]
     Indication: Product used for unknown indication
     Dosage: 1 DF, QD
     Route: 048
  16. SUKROL [Concomitant]
     Indication: Product used for unknown indication
     Dosage: 6 UNK, (3 TABLETS IN THE MORNING AND 3 TABLETS IN THE NIGHT)
     Route: 048
  17. OMEGA 3 [Concomitant]
     Active Substance: CAPSAICIN
     Indication: Product used for unknown indication
     Dosage: 2 DF, QD
     Route: 048
  18. VITAMIN D [Concomitant]
     Active Substance: VITAMIN D NOS
     Indication: Product used for unknown indication
     Dosage: 1 DF, Q12H
     Route: 048

REACTIONS (21)
  - Spinal disorder [Recovering/Resolving]
  - Gait inability [Not Recovered/Not Resolved]
  - Multiple sclerosis relapse [Recovering/Resolving]
  - Muscle spasms [Recovering/Resolving]
  - Head discomfort [Recovering/Resolving]
  - Feeling drunk [Recovering/Resolving]
  - Muscular weakness [Unknown]
  - Multiple sclerosis relapse [Recovered/Resolved]
  - Intervertebral disc protrusion [Recovered/Resolved]
  - Brain injury [Recovering/Resolving]
  - Brain stem embolism [Recovering/Resolving]
  - Paraplegia [Recovering/Resolving]
  - Urinary incontinence [Unknown]
  - Procedural pain [Unknown]
  - Facial spasm [Recovering/Resolving]
  - Abdominal pain [Recovering/Resolving]
  - Limb discomfort [Recovering/Resolving]
  - Muscle tightness [Recovering/Resolving]
  - Pharyngitis [Not Recovered/Not Resolved]
  - Myalgia [Unknown]
  - Prescribed underdose [Unknown]

NARRATIVE: CASE EVENT DATE: 20130401
